FAERS Safety Report 22083905 (Version 2)
Quarter: 2023Q2

REPORT INFORMATION
  Report Type: Spontaneous
  Country: US (occurrence: US)
  Receive Date: 20230310
  Receipt Date: 20230509
  Transmission Date: 20230722
  Serious: Yes (Other)
  Sender: FDA-Public Use
  Company Number: US-AMERICAN REGENT INC-2023000581

PATIENT
  Age: 34 Year
  Sex: Male
  Weight: 69.1 kg

DRUGS (9)
  1. VENOFER [Suspect]
     Active Substance: IRON SUCROSE
     Indication: Iron deficiency anaemia
     Dosage: 50 MG 1X WEEKLY (50 MG,1 IN 1 WK)
     Dates: start: 20221220
  2. VENOFER [Suspect]
     Active Substance: IRON SUCROSE
     Dosage: 50 MG 1X WEEKLY (50 MG,1 IN 1 WK)
     Dates: start: 20230121, end: 20230121
  3. VENOFER [Suspect]
     Active Substance: IRON SUCROSE
     Dosage: 50 MG 1X WEEKLY (50 MG,1 IN 1 WK)
     Dates: end: 20230330
  4. MIRCERA [Suspect]
     Active Substance: METHOXY POLYETHYLENE GLYCOL-EPOETIN BETA
     Indication: Anaemia
     Dosage: BI WEEKLY (100 MCG, 2 IN 1 WK)
     Route: 042
     Dates: start: 20230118, end: 20230118
  5. MIRCERA [Suspect]
     Active Substance: METHOXY POLYETHYLENE GLYCOL-EPOETIN BETA
     Dosage: BI WEEKLY (100 MCG, 2 IN 1 WK)
     Route: 042
     Dates: start: 20230121, end: 20230121
  6. MIRCERA [Suspect]
     Active Substance: METHOXY POLYETHYLENE GLYCOL-EPOETIN BETA
     Dosage: BI WEEKLY (100 MCG, 2 IN 1 WK)
     Route: 042
     Dates: end: 20230221
  7. CALCITRIOL [Concomitant]
     Active Substance: CALCITRIOL
     Indication: Hyperparathyroidism secondary
     Dosage: 1.25 MICROGRAM, 3 IN 1 WK
     Route: 048
     Dates: start: 20230112, end: 20230316
  8. CALCITRIOL [Concomitant]
     Active Substance: CALCITRIOL
     Dosage: DOSE INCREASED
     Route: 048
     Dates: start: 20230316
  9. HEPARIN [Concomitant]
     Active Substance: HEPARIN SODIUM
     Indication: Product used for unknown indication
     Dosage: 5000 IU INTERNATIONAL UNIT(S)
     Dates: start: 20230121

REACTIONS (5)
  - Dysphonia [Recovering/Resolving]
  - Unresponsive to stimuli [Recovering/Resolving]
  - Malaise [Recovering/Resolving]
  - Hyperhidrosis [Recovering/Resolving]
  - Blood pressure increased [Recovering/Resolving]

NARRATIVE: CASE EVENT DATE: 20230118
